FAERS Safety Report 23712853 (Version 3)
Quarter: 2024Q2

REPORT INFORMATION
  Report Type: Spontaneous
  Country: US (occurrence: US)
  Receive Date: 20240405
  Receipt Date: 20240417
  Transmission Date: 20240716
  Serious: Yes (Other)
  Sender: FDA-Public Use
  Company Number: US-PFIZER INC-PV202400043502

PATIENT
  Age: 29 Year
  Sex: Male

DRUGS (2)
  1. TESTOSTERONE CYPIONATE [Suspect]
     Active Substance: TESTOSTERONE CYPIONATE
     Indication: Drug therapy enhancement
     Dosage: UNK
     Route: 030
  2. STANOZOLOL [Suspect]
     Active Substance: STANOZOLOL
     Indication: Drug therapy enhancement
     Dosage: 3 DF (3 PILLS)

REACTIONS (3)
  - Myocarditis [Recovered/Resolved]
  - Drug abuse [Recovered/Resolved]
  - Prescription drug used without a prescription [Recovered/Resolved]
